FAERS Safety Report 5845507-5 (Version None)
Quarter: 2008Q3

REPORT INFORMATION
  Report Type: 
  Country: None (occurrence: None)
  Receive Date: 20080814
  Receipt Date: 20080808
  Transmission Date: 20090109
  Serious: Yes (Other)
  Sender: FDA-Public Use
  Company Number: GB-ROCHE-580051

PATIENT
  Age: 32 Year
  Sex: Female
  Weight: 64 kg

DRUGS (2)
  1. ISOTRETINOIN [Suspect]
     Indication: ACNE
     Route: 048
     Dates: start: 20070509, end: 20071002
  2. NUROFEN [Concomitant]

REACTIONS (3)
  - LOSS OF LIBIDO [None]
  - PARAESTHESIA [None]
  - VULVOVAGINAL DRYNESS [None]
